FAERS Safety Report 11932007 (Version 3)
Quarter: 2016Q1

REPORT INFORMATION
  Report Type: Spontaneous
  Country: US (occurrence: US)
  Receive Date: 20160120
  Receipt Date: 20160210
  Transmission Date: 20160526
  Serious: No
  Sender: FDA-Public Use
  Company Number: US-PFIZER INC-2016018583

PATIENT
  Age: 67 Year
  Sex: Male

DRUGS (13)
  1. LYRICA [Suspect]
     Active Substance: PREGABALIN
     Indication: SPINAL CORD INJURY
     Dosage: UNK (3 TB 200M)
     Dates: start: 200609
  2. LYRICA [Suspect]
     Active Substance: PREGABALIN
     Indication: NEURALGIA
  3. CENTRUM SILVER [Concomitant]
     Active Substance: MINERALS\VITAMINS
  4. VITAMIN B12 [Concomitant]
     Active Substance: CYANOCOBALAMIN
     Dosage: UNK (1 TB 20 M)
  5. ZINC [Concomitant]
     Active Substance: ZINC\ZINC CHLORIDE
     Dosage: UNK (1 TB)
  6. VITAMIN D2 [Concomitant]
     Active Substance: ERGOCALCIFEROL
     Dosage: UNK (2 TB 10,000 M)
  7. ASPIRIN. [Concomitant]
     Active Substance: ASPIRIN
     Dosage: UNK (LOW DOSE ASPIRIN 1 TB)
  8. SOMA [Concomitant]
     Active Substance: CARISOPRODOL
     Dosage: UNK (4 TB 350 M)
  9. MOBIC [Concomitant]
     Active Substance: MELOXICAM
     Dosage: UNK (1 TB 15 M)
  10. PRAZOSIN [Concomitant]
     Active Substance: PRAZOSIN
     Dosage: UNK  (1 TB 5M)
  11. CALCIUM MAGNESIUM + ZINC [Concomitant]
  12. GABAPENTIN. [Concomitant]
     Active Substance: GABAPENTIN
     Dosage: UNK (3 TB 300M)
  13. LISINOPRIL. [Concomitant]
     Active Substance: LISINOPRIL
     Dosage: UNK (2 TB 20M)

REACTIONS (2)
  - Drug ineffective [Unknown]
  - Hypoaesthesia [Not Recovered/Not Resolved]

NARRATIVE: CASE EVENT DATE: 200609
